FAERS Safety Report 5163271-2 (Version None)
Quarter: 2006Q4

REPORT INFORMATION
  Report Type: 
  Country: None (occurrence: None)
  Receive Date: 20061204
  Receipt Date: 20061122
  Transmission Date: 20070319
  Serious: Yes (Other)
  Sender: FDA-Public Use
  Company Number: PHBS2006EE18208

PATIENT
  Age: 49 Year
  Sex: Female

DRUGS (3)
  1. LEPONEX [Suspect]
     Indication: SCHIZOPHRENIA
     Dosage: 225 MG, QD
     Route: 048
  2. LEPONEX [Suspect]
     Route: 048
  3. DIAZEPAM [Concomitant]
     Dosage: 10 MG/DAY
     Route: 048

REACTIONS (3)
  - AKATHISIA [None]
  - PSYCHOTIC DISORDER [None]
  - TREMOR [None]
